FAERS Safety Report 19098669 (Version 2)
Quarter: 2021Q2

REPORT INFORMATION
  Report Type: Spontaneous
  Country: US (occurrence: US)
  Receive Date: 20210406
  Receipt Date: 20210517
  Transmission Date: 20210717
  Serious: Yes (Congenital Anomaly, Other)
  Sender: FDA-Public Use
  Company Number: US-TEVA-2021-US-1896721

PATIENT
  Sex: Female

DRUGS (2)
  1. HYDROMORPHONE [Suspect]
     Active Substance: HYDROMORPHONE
     Route: 064
  2. HYDROMORPHONE [Suspect]
     Active Substance: HYDROMORPHONE
     Route: 064

REACTIONS (22)
  - Developmental delay [Unknown]
  - Pain [Unknown]
  - Behaviour disorder [Unknown]
  - Educational problem [Unknown]
  - Motor dysfunction [Unknown]
  - Adverse event [Unknown]
  - Disinhibition [Unknown]
  - Drug dependence [Unknown]
  - Cognitive disorder [Unknown]
  - Aggression [Unknown]
  - Growth retardation [Unknown]
  - Disturbance in attention [Unknown]
  - Teratogenicity [Unknown]
  - Intellectual disability [Unknown]
  - Fine motor skill dysfunction [Unknown]
  - Speech disorder developmental [Unknown]
  - Mental impairment [Unknown]
  - Foetal exposure during pregnancy [Unknown]
  - Withdrawal syndrome [Unknown]
  - Psychomotor skills impaired [Unknown]
  - Psychomotor hyperactivity [Unknown]
  - Executive dysfunction [Unknown]
